FAERS Safety Report 6602389-1 (Version None)
Quarter: 2010Q1

REPORT INFORMATION
  Report Type: 
  Country: None (occurrence: None)
  Receive Date: 20100225
  Receipt Date: 20100217
  Transmission Date: 20100710
  Serious: Yes (Hospitalization)
  Sender: FDA-Public Use
  Company Number: B0628411A

PATIENT
  Sex: Female

DRUGS (5)
  1. LAMICTAL CD [Suspect]
     Indication: EPILEPSY
     Dosage: 25MG PER DAY
     Route: 048
     Dates: start: 20100104, end: 20100117
  2. TEGRETOL [Suspect]
     Indication: EPILEPSY
     Dosage: 100MG PER DAY
     Route: 048
     Dates: start: 19900101
  3. CONSTAN [Suspect]
     Indication: EPILEPSY
     Route: 048
     Dates: start: 20020101
  4. PRIMIDONE [Suspect]
     Indication: EPILEPSY
     Dosage: 250MG THREE TIMES PER DAY
     Route: 048
  5. GASTER D [Suspect]
     Indication: GASTRITIS PROPHYLAXIS
     Route: 048
     Dates: start: 20100101

REACTIONS (20)
  - ARTHRALGIA [None]
  - BLOOD CREATINE PHOSPHOKINASE INCREASED [None]
  - CONJUNCTIVAL HYPERAEMIA [None]
  - CORNEAL EROSION [None]
  - DISSEMINATED INTRAVASCULAR COAGULATION [None]
  - ERYTHEMA [None]
  - GENITAL HAEMORRHAGE [None]
  - HEPATIC FUNCTION ABNORMAL [None]
  - HISTIOCYTOSIS HAEMATOPHAGIC [None]
  - INFLUENZA [None]
  - LIP EROSION [None]
  - LIVER DISORDER [None]
  - LYMPHADENOPATHY [None]
  - MALAISE [None]
  - MARROW HYPERPLASIA [None]
  - MUCOUS MEMBRANE DISORDER [None]
  - PLATELET COUNT DECREASED [None]
  - PYREXIA [None]
  - RASH [None]
  - STEVENS-JOHNSON SYNDROME [None]
